FAERS Safety Report 21996113 (Version 1)
Quarter: 2023Q1

REPORT INFORMATION
  Report Type: Spontaneous
  Country: US (occurrence: US)
  Receive Date: 20230215
  Receipt Date: 20230215
  Transmission Date: 20230418
  Serious: No
  Sender: FDA-Public Use
  Company Number: US-PERRIGO-22US009023

PATIENT
  Age: 61 Year
  Sex: Male

DRUGS (1)
  1. FAMOTIDINE, CALCIUM CARBONATE, AND MAGNESIUM HYDROXIDE [Suspect]
     Active Substance: CALCIUM CARBONATE\FAMOTIDINE\MAGNESIUM HYDROXIDE
     Indication: Dyspepsia
     Dosage: UNK, UNK
     Route: 048
     Dates: start: 20220623, end: 20220623

REACTIONS (1)
  - Accidental exposure to product packaging [Recovered/Resolved]

NARRATIVE: CASE EVENT DATE: 20220623
